FAERS Safety Report 19232270 (Version 41)
Quarter: 2025Q4

REPORT INFORMATION
  Report Type: Spontaneous
  Country: US (occurrence: US)
  Receive Date: 20210507
  Receipt Date: 20251208
  Transmission Date: 20260119
  Serious: Yes (Hospitalization)
  Sender: PFIZER
  Company Number: US-PFIZER INC-2021247922

PATIENT
  Age: 75 Year
  Sex: Female
  Weight: 81.65 kg

DRUGS (6)
  1. IBRANCE [Suspect]
     Active Substance: PALBOCICLIB
     Indication: Breast cancer stage IV
     Dosage: 100 MG, 14 DAY FOLLOWED BY 14 DAYS OFF/1 TIME A DAY TAKE FOR 14 DAY FOLLOWED BY 14 DAY OFF
     Route: 048
  2. IBRANCE [Suspect]
     Active Substance: PALBOCICLIB
     Dosage: 125 MG
  3. IBRANCE [Suspect]
     Active Substance: PALBOCICLIB
     Dosage: 100 MG ON TWO WEEKS, OFF TWO WEEKS
  4. IBRANCE [Suspect]
     Active Substance: PALBOCICLIB
     Dosage: 100 MG, ON TWO WEEKS, OFF TWO WEEKS
     Dates: end: 20220109
  5. IBRANCE [Suspect]
     Active Substance: PALBOCICLIB
     Dosage: 100 MG TABLET ONCE DAILY FOR 10 DAYS, FOLLOWED BY 10 DAYS OFF - CYCLIC DOSING
     Route: 048
  6. IBRANCE [Suspect]
     Active Substance: PALBOCICLIB
     Dosage: 100 MG TABLET ONCE DAILY FOR 10 DAYS, FOLLOWED BY 10 DAYS OFF - CYCLIC DOSING
     Route: 048
     Dates: start: 20251029

REACTIONS (2)
  - Malaise [Unknown]
  - Off label use [Unknown]
